FAERS Safety Report 8115374-8 (Version None)
Quarter: 2012Q1

REPORT INFORMATION
  Report Type: 
  Country: None (occurrence: None)
  Receive Date: 20120206
  Receipt Date: 20120206
  Transmission Date: 20120608
  Serious: No
  Sender: FDA-Public Use
  Company Number: None

PATIENT
  Age: 38 Year
  Sex: Female
  Weight: 47.627 kg

DRUGS (1)
  1. SPRIX [Suspect]
     Indication: PROCEDURAL PAIN
     Dosage: 1 SPRAY IN EACH NOSTRIL
     Dates: start: 20120203, end: 20120203

REACTIONS (9)
  - ERYTHEMA [None]
  - OROPHARYNGEAL PAIN [None]
  - THROAT IRRITATION [None]
  - LACRIMATION INCREASED [None]
  - DRUG INEFFECTIVE [None]
  - BURNING SENSATION [None]
  - EYE DISORDER [None]
  - NASAL CONGESTION [None]
  - NASAL DISCOMFORT [None]
